FAERS Safety Report 5981893-3 (Version None)
Quarter: 2008Q4

REPORT INFORMATION
  Report Type: 
  Country: None (occurrence: None)
  Receive Date: 20081205
  Receipt Date: 20081127
  Transmission Date: 20090506
  Serious: Yes (Hospitalization, Other)
  Sender: FDA-Public Use
  Company Number: PT-MERCK-0812PRT00001

PATIENT
  Age: 39 Year
  Sex: Male
  Weight: 90 kg

DRUGS (4)
  1. JANUVIA [Suspect]
     Indication: TYPE 2 DIABETES MELLITUS
     Route: 048
     Dates: start: 20080301, end: 20080928
  2. METFORMIN [Concomitant]
     Indication: TYPE 2 DIABETES MELLITUS
     Route: 065
     Dates: start: 20081101
  3. SIMVASTATIN [Concomitant]
     Indication: DYSLIPIDAEMIA
     Route: 065
     Dates: start: 20030101
  4. ASPIRIN [Concomitant]
     Route: 065
     Dates: start: 20071001

REACTIONS (1)
  - PANCREATITIS ACUTE [None]
